FAERS Safety Report 8416100-5 (Version None)
Quarter: 2012Q2

REPORT INFORMATION
  Report Type: 
  Country: None (occurrence: None)
  Receive Date: 20120606
  Receipt Date: 20120529
  Transmission Date: 20120825
  Serious: Yes (Hospitalization, Other)
  Sender: FDA-Public Use
  Company Number: FR-ROCHE-1073339

PATIENT
  Age: 43 Year
  Sex: Male

DRUGS (8)
  1. PANTOPRAZOLE SODIUM [Concomitant]
     Indication: PROPHYLAXIS
     Dates: start: 20091119
  2. COPEGUS [Suspect]
     Indication: HEPATITIS C
     Route: 048
     Dates: start: 20120211
  3. PROPRANOLOL [Concomitant]
     Indication: HYPERTENSION
     Dates: start: 20091118
  4. ALDACTONE [Concomitant]
     Indication: ASCITES
     Dates: start: 20091125
  5. NOROXIN [Concomitant]
     Indication: INFECTION PROPHYLAXIS
     Dates: start: 20091125
  6. PEGASYS [Suspect]
     Indication: HEPATITIS C
     Dates: start: 20120211
  7. BOCEPREVIR [Suspect]
     Indication: HEPATITIS C
     Dates: start: 20120309
  8. ALDACTONE [Concomitant]
     Dates: start: 20120509

REACTIONS (2)
  - OEDEMA PERIPHERAL [None]
  - NEUTROPENIA [None]
